FAERS Safety Report 7494392-7 (Version None)
Quarter: 2011Q2

REPORT INFORMATION
  Report Type: 
  Country: None (occurrence: None)
  Receive Date: 20110520
  Receipt Date: 20110517
  Transmission Date: 20111010
  Serious: Yes (Death)
  Sender: FDA-Public Use
  Company Number: GB-PFIZER INC-2011105566

PATIENT
  Age: 50 Year
  Sex: Male

DRUGS (11)
  1. LOPERAMIDE [Concomitant]
     Dosage: 2 MG, 4X/DAY
     Dates: start: 20110508, end: 20110511
  2. DOXORUBICIN HCL [Suspect]
     Dosage: UNK
     Dates: start: 20110329, end: 20110502
  3. CYCLIZINE [Concomitant]
     Dosage: 50 MG, 3X/DAY
     Dates: start: 20110504, end: 20110514
  4. LANSOPRAZOLE [Concomitant]
     Dosage: 15 MG, 1X/DAY
     Dates: start: 20110428, end: 20110511
  5. PARACETAMOL [Concomitant]
     Dosage: 1 G, UNK
     Dates: start: 20110508, end: 20110510
  6. GEMTUZUMAB OZOGAMICIN [Suspect]
     Dosage: UNK
     Dates: start: 20110429, end: 20110502
  7. CYTARABINE [Suspect]
     Dosage: UNK
     Dates: start: 20110429, end: 20110502
  8. CLOLAR [Suspect]
     Dosage: UNK
     Dates: start: 20110429, end: 20110502
  9. G-CSF [Suspect]
     Dosage: UNK
     Dates: start: 20110429, end: 20110502
  10. ZOPICLONE [Concomitant]
     Dosage: 3.75 MG, 1X/DAY
     Dates: start: 20110428, end: 20110512
  11. ITRACONAZOLE [Concomitant]
     Dosage: 200 MG, 2X/DAY
     Dates: start: 20110428, end: 20110513

REACTIONS (1)
  - NEUTROPENIC SEPSIS [None]
